FAERS Safety Report 6253757-1 (Version None)
Quarter: 2009Q2

REPORT INFORMATION
  Report Type: 
  Country: None (occurrence: None)
  Receive Date: 20090630
  Receipt Date: 20090618
  Transmission Date: 20091009
  Serious: Yes (Hospitalization)
  Sender: FDA-Public Use
  Company Number: TIF2009A00040

PATIENT
  Age: 62 Year
  Sex: Male

DRUGS (3)
  1. ACTOPLUS MET [Suspect]
  2. KARVEZIDE (HYDROCHLOROTHIAZIDE IRBESARTAN) [Concomitant]
  3. VASEXTEN (BARNIDIPINE HYDROCHLORIDE) [Concomitant]

REACTIONS (2)
  - ABNORMAL WEIGHT GAIN [None]
  - GENERALISED OEDEMA [None]
